FAERS Safety Report 11078179 (Version 1)
Quarter: 2020Q3

REPORT INFORMATION
  Report Type: Report from Study
  Country: TR (occurrence: TR)
  Receive Date: 20150430
  Receipt Date: 20150430
  Transmission Date: 20201105
  Serious: Yes (Death, Life-Threatening, Hospitalization)
  Sender: FDA-Public Use
  Company Number: TR-JNJFOC-20140610508

PATIENT
  Age: 73 Year
  Sex: Male
  Weight: 80 kg

DRUGS (35)
  1. RITUXIMAB. [Suspect]
     Active Substance: RITUXIMAB
     Indication: LYMPHOCYTIC LEUKAEMIA
     Route: 042
     Dates: start: 20131226
  2. RITUXIMAB. [Suspect]
     Active Substance: RITUXIMAB
     Indication: CHRONIC LYMPHOCYTIC LEUKAEMIA
     Route: 042
     Dates: start: 20131226
  3. URIKOLIZ [Concomitant]
     Active Substance: ALLOPURINOL
     Indication: TUMOUR LYSIS SYNDROME
     Route: 048
     Dates: start: 20140611, end: 20140611
  4. FARHEX GARGARA [Concomitant]
     Indication: PROPHYLAXIS
     Route: 061
     Dates: start: 20140528, end: 20140529
  5. DEKORT [Concomitant]
     Active Substance: DEXAMETHASONE
     Indication: PREMEDICATION
     Route: 042
     Dates: start: 20140611, end: 20140611
  6. SISTRAL [Concomitant]
     Indication: PREMEDICATION
     Route: 042
     Dates: start: 20140611, end: 20140611
  7. IBRUTINIB [Suspect]
     Active Substance: IBRUTINIB
     Indication: LYMPHOCYTIC LEUKAEMIA
     Route: 048
     Dates: start: 20131227
  8. BENDAMUSTINE [Suspect]
     Active Substance: BENDAMUSTINE
     Indication: CHRONIC LYMPHOCYTIC LEUKAEMIA
     Route: 042
     Dates: start: 20131227
  9. URIKOLIZ [Concomitant]
     Active Substance: ALLOPURINOL
     Indication: PROPHYLAXIS
     Route: 048
     Dates: start: 20131230
  10. FUNGOSTATIN [Concomitant]
     Indication: INFECTION PROPHYLAXIS
     Route: 048
     Dates: start: 20140127, end: 20140613
  11. DEMEPRAZOL [Concomitant]
     Indication: GASTROINTESTINAL DISORDER THERAPY
     Route: 048
     Dates: start: 20140127
  12. ENEMA (SODIUM PHOSPHATE, DIBASIC\SODIUM PHOSPHATE, MONOBASIC) [Concomitant]
     Active Substance: SODIUM PHOSPHATE, DIBASIC\SODIUM PHOSPHATE, MONOBASIC
     Indication: COLONOSCOPY
     Route: 054
     Dates: start: 20140612, end: 20140613
  13. IBRUTINIB [Suspect]
     Active Substance: IBRUTINIB
     Indication: CHRONIC LYMPHOCYTIC LEUKAEMIA
     Route: 048
     Dates: start: 20131227
  14. BENDAMUSTINE [Suspect]
     Active Substance: BENDAMUSTINE
     Indication: LYMPHOCYTIC LEUKAEMIA
     Route: 042
     Dates: start: 20131227
  15. PIPERACILLIN?TAXOB [Concomitant]
     Indication: FEBRILE NEUTROPENIA
     Route: 042
     Dates: start: 20140525, end: 20140529
  16. KLOROBEN [Concomitant]
     Indication: PROPHYLAXIS
     Route: 048
     Dates: start: 20140331
  17. DIAZEM [Concomitant]
     Indication: PREMEDICATION
     Route: 048
     Dates: start: 20140611, end: 20140611
  18. PAROL [Concomitant]
     Active Substance: ACETAMINOPHEN
     Indication: PREMEDICATION
     Route: 048
  19. URIKOLIZ [Concomitant]
     Active Substance: ALLOPURINOL
     Indication: PREMEDICATION
     Route: 048
     Dates: start: 20131230
  20. OROHEKS PLUS GARGARA [Concomitant]
     Indication: PROPHYLAXIS
     Route: 048
     Dates: start: 20140127, end: 20140613
  21. XANAX [Concomitant]
     Active Substance: ALPRAZOLAM
     Indication: ANXIETY
     Route: 048
     Dates: start: 20140409, end: 20140604
  22. ONADRON DERI [Concomitant]
     Indication: OTITIS EXTERNA
     Route: 047
     Dates: start: 20140609, end: 20140609
  23. URIKOLIZ [Concomitant]
     Active Substance: ALLOPURINOL
     Indication: PREMEDICATION
     Route: 048
     Dates: start: 20140421
  24. MIKOSTATIN [Concomitant]
     Active Substance: NYSTATIN
     Indication: PROPHYLAXIS
     Route: 048
     Dates: start: 20140401
  25. URIKOLIZ [Concomitant]
     Active Substance: ALLOPURINOL
     Indication: PREMEDICATION
     Route: 048
     Dates: start: 20140611, end: 20140611
  26. URIKOLIZ [Concomitant]
     Active Substance: ALLOPURINOL
     Indication: PROPHYLAXIS
     Route: 048
     Dates: start: 20140611, end: 20140611
  27. URIKOLIZ [Concomitant]
     Active Substance: ALLOPURINOL
     Indication: TUMOUR LYSIS SYNDROME
     Route: 048
     Dates: start: 20131230
  28. XANAX [Concomitant]
     Active Substance: ALPRAZOLAM
     Indication: ACUTE STRESS DISORDER
     Route: 048
     Dates: start: 20140409, end: 20140604
  29. LEVOFLOXACIN. [Concomitant]
     Active Substance: LEVOFLOXACIN
     Indication: FEBRILE NEUTROPENIA
     Route: 042
     Dates: start: 20140525, end: 20140529
  30. URIKOLIZ [Concomitant]
     Active Substance: ALLOPURINOL
     Indication: PROPHYLAXIS
     Route: 048
     Dates: start: 20140421
  31. URIKOLIZ [Concomitant]
     Active Substance: ALLOPURINOL
     Indication: TUMOUR LYSIS SYNDROME
     Route: 048
     Dates: start: 20140421
  32. PANTOPRAZOLE [Concomitant]
     Active Substance: PANTOPRAZOLE
     Indication: GASTROINTESTINAL DISORDER THERAPY
     Dates: start: 20140423
  33. BACTRIM [Concomitant]
     Active Substance: SULFAMETHOXAZOLE\TRIMETHOPRIM
     Indication: INFECTION PROPHYLAXIS
     Route: 048
     Dates: start: 20140421, end: 20140613
  34. FARHEX GARGARA [Concomitant]
     Indication: PROPHYLAXIS
     Route: 061
     Dates: start: 20140612, end: 20140612
  35. FAMODIN [Concomitant]
     Active Substance: FAMOTIDINE
     Indication: PREMEDICATION
     Dates: start: 20140611, end: 20140611

REACTIONS (3)
  - Cardio-respiratory arrest [Recovered/Resolved]
  - Catheter site haemorrhage [Fatal]
  - Large intestine perforation [Fatal]

NARRATIVE: CASE EVENT DATE: 20140613
